FAERS Safety Report 9613890 (Version 2)
Quarter: 2013Q4

REPORT INFORMATION
  Report Type: Report from Study
  Country: CA (occurrence: CA)
  Receive Date: 20131010
  Receipt Date: 20131010
  Transmission Date: 20140711
  Serious: Yes (Other)
  Sender: FDA-Public Use
  Company Number: CA-ROCHE-1127326

PATIENT
  Age: 62 Year
  Sex: Male
  Weight: 82 kg

DRUGS (4)
  1. ACTEMRA [Suspect]
     Indication: RHEUMATOID ARTHRITIS
     Route: 042
     Dates: start: 20101124
  2. METHOTREXATE [Concomitant]
  3. FOLIC ACID [Concomitant]
  4. SYNTHROID [Concomitant]

REACTIONS (11)
  - Cholelithiasis [Not Recovered/Not Resolved]
  - Nephrolithiasis [Not Recovered/Not Resolved]
  - Anxiety [Recovered/Resolved]
  - Sensory disturbance [Recovered/Resolved]
  - Syncope [Recovered/Resolved]
  - Blood pressure decreased [Recovered/Resolved]
  - Heart rate decreased [Recovered/Resolved]
  - Rash [Not Recovered/Not Resolved]
  - Peripheral coldness [Recovered/Resolved]
  - Rash [Not Recovered/Not Resolved]
  - Dizziness [Not Recovered/Not Resolved]
